FAERS Safety Report 11180228 (Version 1)
Quarter: 2015Q2

REPORT INFORMATION
  Report Type: Report from Study
  Country: CA (occurrence: CA)
  Receive Date: 20150611
  Receipt Date: 20150611
  Transmission Date: 20150821
  Serious: Yes (Hospitalization)
  Sender: FDA-Public Use
  Company Number: CA-JNJFOC-20150604487

PATIENT
  Age: 51 Year
  Sex: Male
  Weight: 56.7 kg

DRUGS (1)
  1. REMICADE [Suspect]
     Active Substance: INFLIXIMAB
     Indication: CROHN^S DISEASE
     Dosage: 52 INFUSION
     Route: 042
     Dates: start: 201204

REACTIONS (2)
  - Enterostomy [Recovered/Resolved]
  - Intestinal resection [Recovered/Resolved]

NARRATIVE: CASE EVENT DATE: 20150409
